FAERS Safety Report 7986133-1 (Version None)
Quarter: 2011Q4

REPORT INFORMATION
  Report Type: 
  Country: None (occurrence: None)
  Receive Date: 20111216
  Receipt Date: 20111207
  Transmission Date: 20120403
  Serious: Yes (Hospitalization)
  Sender: FDA-Public Use
  Company Number: US-BAYER-2011-018434

PATIENT
  Sex: Female
  Weight: 68.027 kg

DRUGS (3)
  1. SKELAXIN [Concomitant]
     Dosage: 800 MG, UNK
     Route: 048
     Dates: start: 20090316
  2. YAZ [Suspect]
     Dosage: UNK
     Route: 048
     Dates: start: 20090301, end: 20090401
  3. LOPRESSOR [Concomitant]
     Dosage: 25 MG, UNK
     Route: 048
     Dates: start: 20090316

REACTIONS (6)
  - INJURY [None]
  - EMOTIONAL DISTRESS [None]
  - STRESS [None]
  - PULMONARY EMBOLISM [None]
  - MENTAL DISORDER [None]
  - ANXIETY [None]
